FAERS Safety Report 8850127 (Version 1)
Quarter: 2012Q4

REPORT INFORMATION
  Report Type: 
  Country: US (occurrence: US)
  Receive Date: 20121019
  Receipt Date: 20121019
  Transmission Date: 20130627
  Serious: Yes (Other)
  Sender: FDA-Public Use
  Company Number: US-PFIZER INC-2012259249

PATIENT
  Age: 58 Year
  Sex: Male
  Weight: 70.3 kg

DRUGS (11)
  1. NEURONTIN [Suspect]
     Indication: NEUROPATHY PERIPHERAL
     Dosage: UNK
     Dates: start: 2002, end: 2003
  2. NEURONTIN [Suspect]
     Indication: INTERVERTEBRAL DISC PROTRUSION
     Dosage: UNK
     Dates: start: 2009
  3. NEURONTIN [Suspect]
     Indication: INJURY
     Dosage: 600 mg, 2x/day
     Dates: start: 2012
  4. NEURONTIN [Suspect]
     Indication: PAIN
  5. NEURONTIN [Suspect]
     Indication: BACK DISORDER
  6. NEURONTIN [Suspect]
     Indication: PARAESTHESIA
  7. NEURONTIN [Suspect]
     Indication: PAIN IN EXTREMITY
  8. TYROSINE [Suspect]
     Indication: PAIN IN EXTREMITY
     Dosage: UNK
     Dates: start: 2012, end: 2012
  9. NORCO [Concomitant]
     Indication: PAIN
     Dosage: 10mg/325mg, UNK
  10. NORCO [Concomitant]
     Dosage: 10mg/325mg ,4x/day
  11. TEMAZEPAM [Concomitant]
     Indication: SLEEP DISORDER
     Dosage: 30 mg, daily

REACTIONS (3)
  - Prostatic specific antigen increased [Unknown]
  - Expired drug administered [Unknown]
  - Drug ineffective [Unknown]
